FAERS Safety Report 23479787 (Version 2)
Quarter: 2024Q2

REPORT INFORMATION
  Report Type: Spontaneous
  Country: JP (occurrence: JP)
  Receive Date: 20240205
  Receipt Date: 20240514
  Transmission Date: 20240716
  Serious: Yes (Hospitalization, Other)
  Sender: FDA-Public Use
  Company Number: JP-MSD-M2024-03715

PATIENT
  Sex: Female

DRUGS (3)
  1. KEYTRUDA [Suspect]
     Active Substance: PEMBROLIZUMAB
     Indication: Triple negative breast cancer
     Dosage: 200 MILLIGRAM, Q3W
     Route: 041
     Dates: start: 202310
  2. PACLITAXEL [Concomitant]
     Active Substance: PACLITAXEL
     Indication: Triple negative breast cancer
     Dosage: 80 MILLIGRAM/SQ. METER, QW
     Route: 041
  3. CARBOPLATIN [Concomitant]
     Active Substance: CARBOPLATIN
     Indication: Triple negative breast cancer
     Dosage: UNK
     Route: 041

REACTIONS (5)
  - Pulmonary embolism [Recovered/Resolved]
  - Immune-mediated enterocolitis [Recovered/Resolved]
  - Pyrexia [Recovered/Resolved]
  - Blood pressure decreased [Recovered/Resolved]
  - Immune-mediated adrenal insufficiency [Unknown]

NARRATIVE: CASE EVENT DATE: 20230101
